FAERS Safety Report 22316730 (Version 1)
Quarter: 2023Q2

REPORT INFORMATION
  Report Type: Spontaneous
  Country: SE (occurrence: SE)
  Receive Date: 20230513
  Receipt Date: 20230513
  Transmission Date: 20230721
  Serious: Yes (Disabling)
  Sender: FDA-Public Use
  Company Number: None

PATIENT
  Age: 68 Year
  Sex: Male
  Weight: 90 kg

DRUGS (9)
  1. GABAPENTIN [Suspect]
     Active Substance: GABAPENTIN
     Indication: Product used for unknown indication
     Dosage: 900 MG, Q8H
     Route: 048
     Dates: start: 20220701
  2. METFORMIN HYDROCHLORIDE [Concomitant]
     Active Substance: METFORMIN HYDROCHLORIDE
     Indication: Product used for unknown indication
     Dosage: 500 MG, Q6H
     Route: 048
     Dates: start: 20180101
  3. ELIQUIS [Concomitant]
     Active Substance: APIXABAN
     Indication: Product used for unknown indication
     Dosage: 5 MG, QD
     Route: 048
     Dates: start: 20220101
  4. DAPAGLIFLOZIN [Concomitant]
     Active Substance: DAPAGLIFLOZIN
     Indication: Product used for unknown indication
     Dosage: 10 MG, QD (DAPAGLIFLOZIN-STRENGTH 10 MG AND DAPAGLIFLOZINPROPANDIOLMONOHYDRAT-12.3 MG)
     Route: 048
     Dates: start: 20220101
  5. GLIMEPIRIDE [Concomitant]
     Active Substance: GLIMEPIRIDE
     Indication: Product used for unknown indication
     Dosage: 1 MG, QD
     Route: 048
     Dates: start: 20220101
  6. BETOLVEX [Concomitant]
     Indication: Product used for unknown indication
     Dosage: 1 MG, QD (CYANOKOBALAMIN-STRENGTH-1 MG)
     Route: 048
     Dates: start: 20180101
  7. ATORVASTATIN [Concomitant]
     Active Substance: ATORVASTATIN
     Indication: Product used for unknown indication
     Dosage: 40 MG, QD (ATORVASTATINKALCIUM, AMORFT-STRENGTH 41.44 MG AND ATORVASTATIN-STRENGTH 40 MG)
     Route: 048
  8. MAGNESIUM HYDROXIDE [Concomitant]
     Active Substance: MAGNESIUM HYDROXIDE
     Indication: Product used for unknown indication
     Dosage: 250 MG, QD (MAGNESIUMHYDROXID-STRENGTH 600 MG AND MAGNESIUM-250 MG)
     Route: 048
     Dates: start: 20180101
  9. METOPROLOL TARTRATE [Concomitant]
     Active Substance: METOPROLOL TARTRATE
     Indication: Product used for unknown indication
     Dosage: 25 MG, QD, (METOPROLOLTARTRAT -STRENGTH 25 MG, METOPROLOLSUCCINAT-STRENGTH 23.75 MG AND METOPROLOL S
     Route: 048
     Dates: start: 20180101

REACTIONS (3)
  - Vision blurred [Not Recovered/Not Resolved]
  - Ejaculation failure [Not Recovered/Not Resolved]
  - Erectile dysfunction [Not Recovered/Not Resolved]

NARRATIVE: CASE EVENT DATE: 20220901
